FAERS Safety Report 5093392-4 (Version None)
Quarter: 2006Q3

REPORT INFORMATION
  Report Type: 
  Country: None (occurrence: None)
  Receive Date: 20060828
  Receipt Date: 20060817
  Transmission Date: 20061208
  Serious: Yes (Hospitalization)
  Sender: FDA-Public Use
  Company Number: 2006RR-03395

PATIENT
  Age: 49 Year
  Sex: Female

DRUGS (4)
  1. CEROXIM(CEFUROXIME AXETIL) [Suspect]
     Indication: LARYNGITIS
     Dosage: 250 MG, SINGLE, ORAL
     Route: 048
     Dates: start: 20060316, end: 20060316
  2. PULMISON [Concomitant]
  3. DEMAZIN [Concomitant]
  4. ALCOPHYLLEX [Concomitant]

REACTIONS (3)
  - DIZZINESS [None]
  - GENERALISED ERYTHEMA [None]
  - PRURITUS GENERALISED [None]
